FAERS Safety Report 6712030-5 (Version None)
Quarter: 2010Q2

REPORT INFORMATION
  Report Type: 
  Country: None (occurrence: None)
  Receive Date: 20100505
  Receipt Date: 20100426
  Transmission Date: 20101027
  Serious: Yes (Death)
  Sender: FDA-Public Use
  Company Number: US-BRACCO-004371

PATIENT
  Sex: Female
  Weight: 82 kg

DRUGS (2)
  1. ISOVUE-370 [Suspect]
     Indication: COMPUTERISED TOMOGRAM ABDOMEN
     Route: 042
     Dates: start: 20100422, end: 20100422
  2. ISOVUE-370 [Suspect]
     Indication: RENAL CELL CARCINOMA
     Route: 042
     Dates: start: 20100422, end: 20100422

REACTIONS (1)
  - ANAPHYLACTIC REACTION [None]
